FAERS Safety Report 7831298-5 (Version None)
Quarter: 2011Q4

REPORT INFORMATION
  Report Type: 
  Country: None (occurrence: None)
  Receive Date: 20111021
  Receipt Date: 20111013
  Transmission Date: 20120403
  Serious: Yes (Hospitalization)
  Sender: FDA-Public Use
  Company Number: DE-ROCHE-1005203

PATIENT
  Sex: Female
  Weight: 50 kg

DRUGS (7)
  1. PACLITAXEL [Suspect]
     Indication: BREAST CANCER METASTATIC
     Route: 042
     Dates: start: 20110825
  2. AVASTIN [Suspect]
     Indication: BREAST CANCER METASTATIC
     Route: 042
     Dates: start: 20110825
  3. GRANISETRON HCL [Suspect]
     Indication: BREAST CANCER METASTATIC
     Route: 042
     Dates: start: 20110825
  4. ZOLEDRONIC ACID [Suspect]
     Indication: BREAST CANCER METASTATIC
     Route: 042
     Dates: start: 20110825
  5. DEXAMETHASONE [Suspect]
     Indication: BREAST CANCER METASTATIC
     Route: 042
     Dates: start: 20110825
  6. RANITIDINE [Suspect]
     Indication: BREAST CANCER METASTATIC
     Route: 042
     Dates: start: 20110825
  7. CLEMASTINE FUMARATE [Suspect]
     Indication: BREAST CANCER METASTATIC
     Route: 042
     Dates: start: 20110825

REACTIONS (6)
  - PERIODONTITIS [None]
  - DYSPNOEA [None]
  - VOMITING [None]
  - DIARRHOEA [None]
  - MUCOSAL INFLAMMATION [None]
  - GENERAL PHYSICAL HEALTH DETERIORATION [None]
